FAERS Safety Report 9681313 (Version 1)
Quarter: 2013Q4

REPORT INFORMATION
  Report Type: Spontaneous
  Country: RO (occurrence: RO)
  Receive Date: 20131111
  Receipt Date: 20131111
  Transmission Date: 20140711
  Serious: Yes (Hospitalization)
  Sender: FDA-Public Use
  Company Number: RO-PERRIGO-13RO011301

PATIENT
  Age: 29 Year
  Sex: Female
  Weight: 55 kg

DRUGS (1)
  1. DOXYLAMINE SUCCINATE 25 MG 441 [Suspect]
     Indication: SUICIDE ATTEMPT
     Dosage: 2250 MG, SINGLE
     Route: 048

REACTIONS (7)
  - Intentional overdose [Recovered/Resolved]
  - Coma [Recovered/Resolved]
  - Convulsion [Recovered/Resolved]
  - Rhabdomyolysis [Recovered/Resolved]
  - Confusional state [Recovered/Resolved]
  - Agitation [Recovered/Resolved]
  - Poisoning [Recovered/Resolved]
